FAERS Safety Report 21362695 (Version 2)
Quarter: 2022Q4

REPORT INFORMATION
  Report Type: Spontaneous
  Country: US (occurrence: US)
  Receive Date: 20220922
  Receipt Date: 20221025
  Transmission Date: 20230112
  Serious: Yes (Hospitalization, Other)
  Sender: FDA-Public Use
  Company Number: US-BRISTOL-MYERS SQUIBB COMPANY-2022-109362

PATIENT
  Age: 62 Year
  Sex: Female
  Weight: 60.96 kg

DRUGS (5)
  1. REVLIMID [Suspect]
     Active Substance: LENALIDOMIDE
     Indication: Myelodysplastic syndrome
     Dosage: 10 MG, DAILY
     Route: 048
     Dates: start: 201706, end: 20220817
  2. ASPIRIN [Concomitant]
     Active Substance: ASPIRIN
     Indication: Myelodysplastic syndrome
     Dates: start: 201706
  3. VITAMIN B12 [Concomitant]
     Active Substance: CYANOCOBALAMIN
     Indication: Product used for unknown indication
     Dosage: SUPPLEMENT
     Route: 048
  4. AMITRIPTYLINE HYDROCHLORIDE [Concomitant]
     Active Substance: AMITRIPTYLINE HYDROCHLORIDE
     Indication: Product used for unknown indication
     Route: 048
     Dates: start: 20180319, end: 20220812
  5. BENZONATATE [Concomitant]
     Active Substance: BENZONATATE
     Indication: Product used for unknown indication
     Route: 048
     Dates: start: 20221006

REACTIONS (3)
  - Meningitis cryptococcal [Recovered/Resolved]
  - Colorectal adenoma [Unknown]
  - Pneumonia [Unknown]

NARRATIVE: CASE EVENT DATE: 20180820
